FAERS Safety Report 7789927-0 (Version None)
Quarter: 2011Q3

REPORT INFORMATION
  Report Type: 
  Country: None (occurrence: None)
  Receive Date: 20110930
  Receipt Date: 20100920
  Transmission Date: 20111222
  Serious: No
  Sender: FDA-Public Use
  Company Number: US-ASTRAZENECA-2010SE26280

PATIENT
  Age: 29871 Day
  Sex: Female
  Weight: 56.7 kg

DRUGS (5)
  1. FISHOIL [Concomitant]
  2. GLIPISIDE [Concomitant]
     Indication: DIABETES MELLITUS
  3. ARIMIDEX [Suspect]
     Indication: BREAST CANCER
     Route: 048
     Dates: start: 20031001, end: 20100401
  4. FUROSEMIDE [Concomitant]
     Indication: FLUID RETENTION
  5. GREEN TEA [Concomitant]

REACTIONS (2)
  - DRUG DOSE OMISSION [None]
  - TUMOUR MARKER INCREASED [None]
